FAERS Safety Report 15254588 (Version 1)
Quarter: 2018Q3

REPORT INFORMATION
  Report Type: Spontaneous
  Country: US (occurrence: US)
  Receive Date: 20180717
  Receipt Date: 20180717
  Transmission Date: 20181010
  Serious: Yes (Hospitalization, Disabling)
  Sender: FDA-Public Use
  Company Number: None

PATIENT
  Age: 61 Year
  Sex: Female
  Weight: 50.85 kg

DRUGS (1)
  1. LORAZEPAM. [Suspect]
     Active Substance: LORAZEPAM
     Indication: NAUSEA
     Dates: start: 20140815, end: 20141031

REACTIONS (2)
  - Ill-defined disorder [None]
  - Adverse event [None]

NARRATIVE: CASE EVENT DATE: 20141101
